FAERS Safety Report 16872688 (Version 1)
Quarter: 2019Q4

REPORT INFORMATION
  Report Type: Spontaneous
  Country: US (occurrence: US)
  Receive Date: 20191001
  Receipt Date: 20191001
  Transmission Date: 20200122
  Serious: Yes (Life-Threatening, Hospitalization, Other)
  Sender: FDA-Public Use
  Company Number: US-DRREDDYS-USA/USA/19/0114677

PATIENT
  Age: 28 Year
  Sex: Female

DRUGS (9)
  1. AMIKACIN. [Suspect]
     Active Substance: AMIKACIN
     Indication: PROPHYLAXIS
  2. TOBRAMYCIN. [Suspect]
     Active Substance: TOBRAMYCIN
     Indication: PROPHYLAXIS
  3. MINOCYCLINE HYDROCHLORIDE. [Suspect]
     Active Substance: MINOCYCLINE HYDROCHLORIDE
     Indication: PROPHYLAXIS
     Route: 065
  4. MEROPENEM. [Suspect]
     Active Substance: MEROPENEM
     Dosage: EXTENDED INFUSION
  5. COTRIMOXAZOLE [Suspect]
     Active Substance: SULFAMETHOXAZOLE\TRIMETHOPRIM
     Indication: PROPHYLAXIS
  6. DAPSONE. [Suspect]
     Active Substance: DAPSONE
     Indication: PROPHYLAXIS
  7. MEROPENEM. [Suspect]
     Active Substance: MEROPENEM
     Indication: PROPHYLAXIS
  8. PIPERACILLIN AND TAZOBACTAM [Suspect]
     Active Substance: PIPERACILLIN SODIUM\TAZOBACTAM SODIUM
     Indication: BURKHOLDERIA CEPACIA COMPLEX INFECTION
  9. POSACONAZOLE [Suspect]
     Active Substance: POSACONAZOLE
     Indication: PROPHYLAXIS

REACTIONS (6)
  - Haemorrhage [Unknown]
  - Sepsis [Unknown]
  - Renal failure [Unknown]
  - Liver injury [Unknown]
  - Toxicity to various agents [Unknown]
  - Drug ineffective [Unknown]
